FAERS Safety Report 5573185-1 (Version None)
Quarter: 2007Q4

REPORT INFORMATION
  Report Type: 
  Country: None (occurrence: None)
  Receive Date: 20071224
  Receipt Date: 20071217
  Transmission Date: 20080405
  Serious: Yes (Hospitalization)
  Sender: FDA-Public Use
  Company Number: JP-AVENTIS-200713080JP

PATIENT

DRUGS (3)
  1. AMARYL [Suspect]
     Indication: DIABETES MELLITUS
     Route: 048
  2. UNKNOWN DRUG [Concomitant]
  3. PREDNISOLONE [Concomitant]

REACTIONS (1)
  - ASTERIXIS [None]
